FAERS Safety Report 21156228 (Version 1)
Quarter: 2022Q3

REPORT INFORMATION
  Report Type: Spontaneous
  Country: US (occurrence: US)
  Receive Date: 20220801
  Receipt Date: 20220801
  Transmission Date: 20221027
  Serious: No
  Sender: FDA-Public Use
  Company Number: US-MYLANLABS-2022M1080424

PATIENT
  Sex: Female

DRUGS (1)
  1. RIVASTIGMINE [Suspect]
     Active Substance: RIVASTIGMINE
     Indication: Product used for unknown indication
     Dosage: UNK, (9.5MG/ 24 HRS)
     Route: 065

REACTIONS (2)
  - Application site erythema [Unknown]
  - Application site swelling [Unknown]

NARRATIVE: CASE EVENT DATE: 20220501
